FAERS Safety Report 13509268 (Version 2)
Quarter: 2017Q2

REPORT INFORMATION
  Report Type: Spontaneous
  Country: CN (occurrence: CN)
  Receive Date: 20170503
  Receipt Date: 20170510
  Transmission Date: 20170830
  Serious: Yes (Other)
  Sender: FDA-Public Use
  Company Number: CN-PFIZER INC-2017186535

PATIENT
  Age: 54 Year
  Sex: Male
  Weight: 74 kg

DRUGS (4)
  1. ENDOXAN [Suspect]
     Active Substance: CYCLOPHOSPHAMIDE
     Indication: CHEMOTHERAPY
     Dosage: 400 MG, 2X/DAY
     Route: 041
     Dates: start: 20170111, end: 20170113
  2. DEXAMETHASONE SODIUM PHOSPHATE. [Concomitant]
     Active Substance: DEXAMETHASONE SODIUM PHOSPHATE
     Indication: CHEMOTHERAPY
     Dosage: 10 MG, 1X/DAY
     Route: 041
     Dates: start: 20170111, end: 20170114
  3. PHARMORUBICIN [Suspect]
     Active Substance: EPIRUBICIN
     Indication: CHEMOTHERAPY
     Dosage: 40 MG, 1X/DAY
     Route: 041
     Dates: start: 20170114, end: 20170116
  4. VINCRISTINE SULFATE. [Concomitant]
     Active Substance: VINCRISTINE SULFATE
     Indication: CHEMOTHERAPY
     Dosage: 2 MG, 1X/DAY
     Route: 041
     Dates: start: 20170114, end: 20170114

REACTIONS (1)
  - Bone marrow failure [Recovering/Resolving]

NARRATIVE: CASE EVENT DATE: 20170118
